FAERS Safety Report 7836609-2 (Version None)
Quarter: 2011Q4

REPORT INFORMATION
  Report Type: 
  Country: None (occurrence: None)
  Receive Date: 20111024
  Receipt Date: 20110705
  Transmission Date: 20120403
  Serious: No
  Sender: FDA-Public Use
  Company Number: US-ABBOTT-11P-163-0836896-00

PATIENT
  Sex: Female
  Weight: 92.616 kg

DRUGS (10)
  1. LUPRON DEPOT [Suspect]
     Indication: ENDOMETRIOSIS
     Route: 030
     Dates: start: 20110401
  2. TEGRETOL-XR [Concomitant]
     Indication: CONVULSION
     Route: 048
  3. DOXEPIN [Concomitant]
     Indication: PRURITUS
     Dosage: ONCE DAILY, AS REQUIRED
     Route: 048
  4. VITAMIN B6 [Concomitant]
     Indication: VITAMIN SUPPLEMENTATION
     Route: 048
  5. DOXEPIN [Concomitant]
     Indication: DEPRESSION
  6. FOLIC ACID [Concomitant]
     Indication: VITAMIN SUPPLEMENTATION
     Route: 048
  7. PREVACID [Concomitant]
     Indication: GASTROOESOPHAGEAL REFLUX DISEASE
     Route: 048
  8. KEPPRA [Concomitant]
     Indication: CONVULSION
     Route: 048
  9. ALBUTEROL [Concomitant]
     Indication: ASTHMA
  10. POLYETHYLENE GLYCOL [Concomitant]
     Indication: CONSTIPATION
     Route: 048

REACTIONS (4)
  - BLOOD PRESSURE INCREASED [None]
  - DIZZINESS [None]
  - TREMOR [None]
  - ASTHENIA [None]
